FAERS Safety Report 14763893 (Version 1)
Quarter: 2018Q2

REPORT INFORMATION
  Report Type: Report from Study
  Country: US (occurrence: US)
  Receive Date: 20180416
  Receipt Date: 20180416
  Transmission Date: 20180711
  Serious: Yes (Hospitalization)
  Sender: FDA-Public Use
  Company Number: US-ROCHE-2103773

PATIENT
  Age: 74 Year
  Sex: Female
  Weight: 60.2 kg

DRUGS (15)
  1. ATEZOLIZUMAB. [Suspect]
     Active Substance: ATEZOLIZUMAB
     Dosage: 60 MG/ML
     Route: 042
     Dates: start: 20180112
  2. ATEZOLIZUMAB. [Suspect]
     Active Substance: ATEZOLIZUMAB
     Dosage: 60 MG/ML
     Route: 042
     Dates: start: 20180316
  3. ATEZOLIZUMAB. [Suspect]
     Active Substance: ATEZOLIZUMAB
     Dosage: 60 MG/ML
     Route: 042
     Dates: start: 20171103
  4. ATEZOLIZUMAB. [Suspect]
     Active Substance: ATEZOLIZUMAB
     Dosage: 60 MG/ML
     Route: 042
     Dates: start: 20171201
  5. ATEZOLIZUMAB. [Suspect]
     Active Substance: ATEZOLIZUMAB
     Dosage: 60 MG/ML
     Route: 042
     Dates: start: 20171012
  6. ATEZOLIZUMAB. [Suspect]
     Active Substance: ATEZOLIZUMAB
     Dosage: 60 MG/ML
     Route: 042
     Dates: start: 20180202
  7. ATEZOLIZUMAB. [Suspect]
     Active Substance: ATEZOLIZUMAB
     Dosage: 60 MG/ML
     Route: 042
     Dates: start: 20171222
  8. CARBOPLATIN. [Suspect]
     Active Substance: CARBOPLATIN
     Dosage: 10 MG/ML  DAY 36 CYCLE 1
     Route: 042
     Dates: start: 20170901
  9. ATEZOLIZUMAB. [Suspect]
     Active Substance: ATEZOLIZUMAB
     Dosage: 60 MG/ML
     Route: 042
     Dates: start: 20170922
  10. ATEZOLIZUMAB. [Suspect]
     Active Substance: ATEZOLIZUMAB
     Dosage: 60 MG/ML DAY 36 CYCLE 1
     Route: 042
     Dates: start: 20170901
  11. ATEZOLIZUMAB. [Suspect]
     Active Substance: ATEZOLIZUMAB
     Dosage: 60 MG/ML
     Route: 042
     Dates: start: 20180223
  12. CARBOPLATIN. [Suspect]
     Active Substance: CARBOPLATIN
     Indication: LUNG NEOPLASM MALIGNANT
     Dosage: 10 MG/ML DAY 1 CYCLE 1
     Route: 042
     Dates: start: 20170724
  13. CARBOPLATIN. [Suspect]
     Active Substance: CARBOPLATIN
     Dosage: 10 MG/ML DAY 8 CYCLE 1
     Route: 042
     Dates: start: 20170731
  14. ATEZOLIZUMAB. [Suspect]
     Active Substance: ATEZOLIZUMAB
     Indication: LUNG NEOPLASM MALIGNANT
     Dosage: 60 MG/ML DAY1 CYCLE 1
     Route: 042
     Dates: start: 20170724
  15. CARBOPLATIN. [Suspect]
     Active Substance: CARBOPLATIN
     Dosage: 10 MG/ML  DAY 15 CYCLE 1
     Route: 042
     Dates: start: 20170807

REACTIONS (2)
  - Disease progression [Unknown]
  - Bone neoplasm [Unknown]

NARRATIVE: CASE EVENT DATE: 20180330
